FAERS Safety Report 8513941-0 (Version None)
Quarter: 2012Q3

REPORT INFORMATION
  Report Type: 
  Country: None (occurrence: None)
  Receive Date: 20120717
  Receipt Date: 20120703
  Transmission Date: 20120928
  Serious: Yes (Death, Hospitalization)
  Sender: FDA-Public Use
  Company Number: US-009507513-1207USA001362

PATIENT

DRUGS (5)
  1. MK-2206 [Suspect]
     Dosage: 30 MG, QOD
     Route: 048
     Dates: start: 20120414, end: 20120607
  2. ERLOTINIB HYDROCHLORIDE [Suspect]
     Indication: NON-SMALL CELL LUNG CANCER
     Dosage: 100 MG, QD
     Route: 048
     Dates: start: 20120608, end: 20120630
  3. MK-2206 [Suspect]
     Dosage: 45 MG, QOD
     Route: 048
     Dates: start: 20120217, end: 20120413
  4. ERLOTINIB HYDROCHLORIDE [Suspect]
     Dosage: 150 MG, QD
     Route: 048
     Dates: start: 20120217
  5. MK-2206 [Suspect]
     Indication: NON-SMALL CELL LUNG CANCER
     Dosage: 30 MG, QOD
     Route: 048
     Dates: start: 20120608, end: 20120630

REACTIONS (4)
  - DYSPNOEA [None]
  - HYPOXIA [None]
  - NEOPLASM [None]
  - BENIGN NEOPLASM [None]
